FAERS Safety Report 6341640-2 (Version None)
Quarter: 2009Q3

REPORT INFORMATION
  Report Type: 
  Country: None (occurrence: None)
  Receive Date: 20090904
  Receipt Date: 20090824
  Transmission Date: 20100115
  Serious: Yes (Hospitalization)
  Sender: FDA-Public Use
  Company Number: DE-AMGEN-US361962

PATIENT
  Age: 11 Year
  Sex: Female

DRUGS (2)
  1. ENBREL [Suspect]
     Indication: JUVENILE ARTHRITIS
     Route: 058
     Dates: start: 20080501
  2. NUROFEN [Concomitant]
     Indication: JUVENILE ARTHRITIS
     Dosage: 900MG/D
     Route: 048

REACTIONS (1)
  - JUVENILE ARTHRITIS [None]
